FAERS Safety Report 7264669-9 (Version None)
Quarter: 2011Q1

REPORT INFORMATION
  Report Type: 
  Country: None (occurrence: None)
  Receive Date: 20110131
  Receipt Date: 20110126
  Transmission Date: 20110831
  Serious: No
  Sender: FDA-Public Use
  Company Number: US-PFIZER INC-2011018961

PATIENT
  Sex: Female
  Weight: 56.689 kg

DRUGS (2)
  1. XALATAN [Suspect]
     Indication: INTRAOCULAR PRESSURE INCREASED
     Dosage: ONE DROP IN THE RIGHT EYE ONCE A DAY
     Route: 047
  2. COSOPT [Concomitant]
     Indication: INTRAOCULAR PRESSURE INCREASED
     Dosage: UNK

REACTIONS (2)
  - DRUG EFFECT DECREASED [None]
  - INTRAOCULAR PRESSURE INCREASED [None]
